FAERS Safety Report 9998972 (Version 1)
Quarter: 2014Q1

REPORT INFORMATION
  Report Type: Report from Study
  Country: US (occurrence: US)
  Receive Date: 20140312
  Receipt Date: 20140312
  Transmission Date: 20141002
  Serious: Yes (Other)
  Sender: FDA-Public Use
  Company Number: US-ALEXION-A201202955

PATIENT
  Sex: 0

DRUGS (2)
  1. SOLIRIS [Suspect]
     Indication: PAROXYSMAL NOCTURNAL HAEMOGLOBINURIA
     Dosage: UNK
     Route: 042
     Dates: end: 20121210
  2. PROCRIT                            /00909301/ [Concomitant]
     Indication: IRON DEFICIENCY ANAEMIA

REACTIONS (2)
  - Myelofibrosis [Unknown]
  - Iron deficiency anaemia [Unknown]
